FAERS Safety Report 21936017 (Version 1)
Quarter: 2023Q1

REPORT INFORMATION
  Report Type: Report from Study
  Country: US (occurrence: US)
  Receive Date: 20230201
  Receipt Date: 20230201
  Transmission Date: 20230418
  Serious: No
  Sender: FDA-Public Use
  Company Number: US-INCYTE CORPORATION-2020IN004926

PATIENT

DRUGS (3)
  1. PEMIGATINIB [Suspect]
     Active Substance: PEMIGATINIB
     Indication: Cholangiocarcinoma
     Dosage: 13.5 MILLIGRAM, QAM
     Route: 048
     Dates: start: 20200506
  2. PEMIGATINIB [Suspect]
     Active Substance: PEMIGATINIB
     Dosage: UNK
     Route: 065
     Dates: start: 201707
  3. LISTERINE ANTISEPTIC [Concomitant]
     Active Substance: EUCALYPTOL\MENTHOL\METHYL SALICYLATE\THYMOL
     Indication: Product used for unknown indication
     Route: 065

REACTIONS (9)
  - Growth of eyelashes [Unknown]
  - Osteoporosis [Unknown]
  - Dry mouth [Unknown]
  - Dry eye [Unknown]
  - Stomatitis [Unknown]
  - Alopecia [Recovering/Resolving]
  - Nail disorder [Unknown]
  - Onychomadesis [Unknown]
  - Nail discolouration [Unknown]
